FAERS Safety Report 18491273 (Version 1)
Quarter: 2020Q4

REPORT INFORMATION
  Report Type: Spontaneous
  Country: DE (occurrence: DE)
  Receive Date: 20201111
  Receipt Date: 20201111
  Transmission Date: 20210114
  Serious: Yes (Life-Threatening, Hospitalization, Other)
  Sender: FDA-Public Use
  Company Number: DE-TEVA-2020-DE-1846194

PATIENT
  Age: 71 Year
  Sex: Male

DRUGS (5)
  1. ULTIBRO BREEZHALER 85MIKROGRAMM/43MIKROGRAMM [Concomitant]
     Dosage: 1 DOSAGE FORMS DAILY; 85|43 MCG, 1-0-0-0
  2. TAMSULOSIN [Concomitant]
     Active Substance: TAMSULOSIN
     Dosage: .4 MILLIGRAM DAILY;  0-0-1-0
  3. PANTOPRAZOL [Concomitant]
     Active Substance: PANTOPRAZOLE SODIUM
     Dosage: 40 MILLIGRAM DAILY; 1-0-0-0
  4. BISOPROLOL [Suspect]
     Active Substance: BISOPROLOL
     Dosage: 2.5 MILLIGRAM DAILY; 1-0-0-0
  5. COLECALCIFEROL (VITAMIN D) [Concomitant]
     Dosage: 20,000 IU / 2 WEEKS, SUNDAYS

REACTIONS (4)
  - Acute respiratory failure [Unknown]
  - Electrolyte imbalance [Unknown]
  - Dyspnoea [Unknown]
  - General physical health deterioration [Unknown]
